FAERS Safety Report 11129923 (Version 1)
Quarter: 2015Q2

REPORT INFORMATION
  Report Type: Spontaneous
  Country: US (occurrence: None)
  Receive Date: 20150520
  Receipt Date: 20150520
  Transmission Date: 20150821
  Serious: No
  Sender: FDA-Public Use
  Company Number: None

PATIENT
  Age: 36 Year
  Sex: Female
  Weight: 68.04 kg

DRUGS (8)
  1. TREXIMET [Concomitant]
     Active Substance: NAPROXEN SODIUM\SUMATRIPTAN SUCCINATE
  2. OPTIMUM NUTRITION OPTI WOMEN MULTI VITAMIN [Concomitant]
  3. ALDACTONE [Concomitant]
     Active Substance: SPIRONOLACTONE
  4. COLAZAL [Concomitant]
     Active Substance: BALSALAZIDE DISODIUM
  5. IMURAN [Concomitant]
     Active Substance: AZATHIOPRINE
  6. BOTOX [Suspect]
     Active Substance: ONABOTULINUMTOXINA
     Indication: MIGRAINE
     Dosage: 32 INJECTIONS ?GIVEN INTO/UNDER THE SKIN
     Route: 042
     Dates: start: 20150512
  7. GREEN TEA EXTRACT [Concomitant]
  8. BENADRYL [Concomitant]
     Active Substance: DIPHENHYDRAMINE HYDROCHLORIDE

REACTIONS (4)
  - Headache [None]
  - Pharyngeal oedema [None]
  - Neck pain [None]
  - Dysphagia [None]

NARRATIVE: CASE EVENT DATE: 20150512
